FAERS Safety Report 22843514 (Version 2)
Quarter: 2024Q1

REPORT INFORMATION
  Report Type: Report from Study
  Country: BR (occurrence: None)
  Receive Date: 20230821
  Receipt Date: 20240109
  Transmission Date: 20240410
  Serious: Yes (Other)
  Sender: FDA-Public Use
  Company Number: 2023A189502

PATIENT
  Age: 49 Year
  Sex: Female

DRUGS (1)
  1. LYNPARZA [Suspect]
     Active Substance: OLAPARIB
     Indication: Ovarian cancer
     Dosage: UNK
     Route: 048
     Dates: start: 2023, end: 2023

REACTIONS (3)
  - Malignant neoplasm progression [Unknown]
  - Ovarian cancer recurrent [Unknown]
  - Refractory cancer [Unknown]

NARRATIVE: CASE EVENT DATE: 20230101
